FAERS Safety Report 6239981-2 (Version None)
Quarter: 2009Q2

REPORT INFORMATION
  Report Type: 
  Country: None (occurrence: None)
  Receive Date: 20090623
  Receipt Date: 20090617
  Transmission Date: 20091009
  Serious: Yes (Other)
  Sender: FDA-Public Use
  Company Number: IE-ASTRAZENECA-2009GB00762

PATIENT
  Sex: Female

DRUGS (1)
  1. OMEPRAZOLE (GENERIC) [Suspect]
     Dosage: 40MG
     Route: 048

REACTIONS (1)
  - RENAL FAILURE [None]
